FAERS Safety Report 8442785-3 (Version None)
Quarter: 2012Q2

REPORT INFORMATION
  Report Type: 
  Country: None (occurrence: None)
  Receive Date: 20120615
  Receipt Date: 20120606
  Transmission Date: 20120825
  Serious: Yes (Other)
  Sender: FDA-Public Use
  Company Number: US-ROCHE-783683

PATIENT
  Sex: Male
  Weight: 79.904 kg

DRUGS (1)
  1. ACCUTANE [Suspect]
     Indication: ACNE CYSTIC
     Route: 065
     Dates: start: 19960801, end: 19961201

REACTIONS (8)
  - COLITIS ULCERATIVE [None]
  - DIVERTICULITIS [None]
  - EMOTIONAL DISTRESS [None]
  - DEPRESSION [None]
  - OSTEOPOROSIS [None]
  - INFLAMMATORY BOWEL DISEASE [None]
  - CROHN'S DISEASE [None]
  - SMALL INTESTINAL OBSTRUCTION [None]
